FAERS Safety Report 5424752-7 (Version None)
Quarter: 2007Q3

REPORT INFORMATION
  Report Type: 
  Country: None (occurrence: None)
  Receive Date: 20070725
  Receipt Date: 20061127
  Transmission Date: 20080115
  Serious: No
  Sender: FDA-Public Use
  Company Number: USA-2006-0025802

PATIENT
  Age: 42 Year
  Sex: Female

DRUGS (1)
  1. MS CONTIN [Suspect]
     Indication: PORPHYRIA
     Dosage: 15 MG, BID

REACTIONS (1)
  - OVERDOSE [None]
